FAERS Safety Report 21449608 (Version 1)
Quarter: 2022Q4

REPORT INFORMATION
  Report Type: Spontaneous
  Country: US (occurrence: US)
  Receive Date: 20221013
  Receipt Date: 20221013
  Transmission Date: 20230113
  Serious: Yes (Hospitalization, Other)
  Sender: FDA-Public Use
  Company Number: US-MLMSERVICE-20220926-3817808-1

PATIENT
  Age: 49 Year
  Sex: Female

DRUGS (2)
  1. PREDNISONE [Suspect]
     Active Substance: PREDNISONE
     Indication: Still^s disease
     Dosage: UNK, INCREASED TO 40 MG DAILY
     Route: 065
  2. PREDNISONE [Suspect]
     Active Substance: PREDNISONE
     Dosage: 40 MILLIGRAM, ONCE A DAY, INCREASED TO 40 MG DAILY
     Route: 065

REACTIONS (1)
  - Meningitis cryptococcal [Recovering/Resolving]
